FAERS Safety Report 25810218 (Version 2)
Quarter: 2025Q4

REPORT INFORMATION
  Report Type: Spontaneous
  Country: US (occurrence: US)
  Receive Date: 20250917
  Receipt Date: 20251009
  Transmission Date: 20260118
  Serious: No
  Sender: TOLMAR
  Company Number: US-Tolmar-TLM-2025-05910

PATIENT

DRUGS (2)
  1. ELIGARD [Suspect]
     Active Substance: LEUPROLIDE ACETATE
     Indication: Prostate cancer
     Dosage: NDC: 6293546150?SN: 5358208178239?GTIN: 00362935461500?EXPIRATION DATE: 31-OCT-2026; 30-SEP-2026; 30
  2. DEVICE [Suspect]
     Active Substance: DEVICE
     Indication: Prostate cancer
     Dosage: NDC: 6293546150?SN: 5358208178239?GTIN: 00362935461500?EXPIRATION DATE: 31-OCT-2026; 30-SEP-2026; 30

REACTIONS (4)
  - Intercepted product preparation error [Unknown]
  - Product preparation error [Unknown]
  - Device leakage [Unknown]
  - Wrong technique in product usage process [Unknown]
